FAERS Safety Report 5342622-X (Version None)
Quarter: 2007Q2

REPORT INFORMATION
  Report Type: 
  Country: None (occurrence: None)
  Receive Date: 20070601
  Receipt Date: 20070326
  Transmission Date: 20071010
  Serious: Yes (Hospitalization, Disabling)
  Sender: FDA-Public Use
  Company Number: JP-BOEHRINGER INGELHEIM PHARMACEUTICALS, INC.-2007-BP-01575NB

PATIENT
  Sex: Female

DRUGS (22)
  1. BI-SIFROL TABLETS [Suspect]
     Indication: PARKINSON'S DISEASE
     Route: 048
     Dates: start: 20050427
  2. EC-DOPARL [Suspect]
     Indication: PARKINSON'S DISEASE
     Route: 048
     Dates: start: 19990301
  3. FP [Suspect]
     Indication: PARKINSON'S DISEASE
     Route: 048
     Dates: start: 20001001, end: 20051116
  4. TAKEPRON [Concomitant]
     Route: 048
  5. LOCHOL [Concomitant]
     Route: 048
  6. ANPLAG [Concomitant]
     Route: 048
  7. YODEL [Concomitant]
     Route: 048
  8. MAGNESIUM OXIDE [Concomitant]
     Route: 048
  9. ALFAROL [Concomitant]
     Route: 048
  10. ITOROL [Concomitant]
     Route: 048
  11. GRANPAM [Concomitant]
     Route: 048
  12. PROSTALIN [Concomitant]
     Route: 048
  13. DOGMATYL [Concomitant]
     Route: 048
  14. NITOROL R [Concomitant]
     Route: 048
  15. PRAVASTATIN [Concomitant]
     Route: 048
  16. SENNOSIDE [Concomitant]
     Route: 048
  17. MOBIC [Concomitant]
     Route: 048
  18. DORNARIN [Concomitant]
     Route: 048
  19. JIASERA L [Concomitant]
     Route: 048
  20. TISTAMET [Concomitant]
     Route: 048
  21. PURSENNID [Concomitant]
     Route: 048
  22. NAUZELIN [Concomitant]
     Indication: PROPHYLAXIS OF NAUSEA AND VOMITING
     Route: 048

REACTIONS (3)
  - FALL [None]
  - FEMUR FRACTURE [None]
  - INSOMNIA [None]
